FAERS Safety Report 5535757-X (Version None)
Quarter: 2007Q4

REPORT INFORMATION
  Report Type: 
  Country: None (occurrence: None)
  Receive Date: 20071206
  Receipt Date: 20070328
  Transmission Date: 20080405
  Serious: Yes (Hospitalization)
  Sender: FDA-Public Use
  Company Number: US-AMGEN-US217417

PATIENT
  Sex: Female

DRUGS (1)
  1. ENBREL [Suspect]
     Indication: RHEUMATOID ARTHRITIS
     Route: 058
     Dates: start: 20040601

REACTIONS (6)
  - BRUXISM [None]
  - CHEST PAIN [None]
  - HEADACHE [None]
  - HIATUS HERNIA [None]
  - NIGHTMARE [None]
  - REFLUX OESOPHAGITIS [None]
